FAERS Safety Report 14730062 (Version 2)
Quarter: 2018Q2

REPORT INFORMATION
  Report Type: Spontaneous
  Country: IT (occurrence: IT)
  Receive Date: 20180406
  Receipt Date: 20180413
  Transmission Date: 20180711
  Serious: Yes (Hospitalization)
  Sender: FDA-Public Use
  Company Number: HK-ASTRAZENECA-2018SE40743

PATIENT
  Age: 85 Year
  Sex: Female

DRUGS (11)
  1. PAROXETINE. [Interacting]
     Active Substance: PAROXETINE
     Route: 048
  2. HYDROCHLOROTHIAZIDE. [Suspect]
     Active Substance: HYDROCHLOROTHIAZIDE
     Dosage: NON-AZ PRODUCT, 12.5 MG DAILY.
     Route: 048
  3. CARVEDILOL. [Interacting]
     Active Substance: CARVEDILOL
     Route: 048
  4. QUETIAPINE FUMARATE. [Suspect]
     Active Substance: QUETIAPINE FUMARATE
     Route: 048
  5. OMEPRAZOLE. [Interacting]
     Active Substance: OMEPRAZOLE
     Route: 048
  6. VENLAFAXINE [Interacting]
     Active Substance: VENLAFAXINE HYDROCHLORIDE
     Route: 048
  7. CLOPIDOGREL [Interacting]
     Active Substance: CLOPIDOGREL BISULFATE
     Route: 048
  8. ATORVASTATIN [Suspect]
     Active Substance: ATORVASTATIN
     Route: 048
  9. LEVOTHYROXINE. [Suspect]
     Active Substance: LEVOTHYROXINE
     Dosage: 50 MICROGRAMS PER INHALATION, DAILY
     Route: 048
  10. BUPROPION. [Interacting]
     Active Substance: BUPROPION
     Route: 048
  11. IRBESARTAN. [Suspect]
     Active Substance: IRBESARTAN
     Route: 048

REACTIONS (5)
  - Drug interaction [Unknown]
  - Labelled drug-drug interaction medication error [Unknown]
  - Hypotension [Unknown]
  - Fall [Unknown]
  - Dehydration [Unknown]
